FAERS Safety Report 8534749-6 (Version None)
Quarter: 2012Q3

REPORT INFORMATION
  Report Type: 
  Country: None (occurrence: None)
  Receive Date: 20120724
  Receipt Date: 20120718
  Transmission Date: 20120928
  Serious: Yes (Death)
  Sender: FDA-Public Use
  Company Number: DE-GLAXOSMITHKLINE-D0076250A

PATIENT
  Sex: Male

DRUGS (1)
  1. ARIXTRA [Suspect]
     Indication: PROPHYLAXIS
     Dosage: 2.5MG PER DAY
     Route: 058

REACTIONS (1)
  - HAEMORRHAGE [None]
